FAERS Safety Report 22143221 (Version 1)
Quarter: 2023Q1

REPORT INFORMATION
  Report Type: Spontaneous
  Country: CN (occurrence: CN)
  Receive Date: 20230327
  Receipt Date: 20230327
  Transmission Date: 20230418
  Serious: Yes (Hospitalization)
  Sender: FDA-Public Use
  Company Number: CN-002147023-NVSC2022CN213495

PATIENT
  Age: 9 Year
  Sex: Male
  Weight: 21 kg

DRUGS (2)
  1. OXCARBAZEPINE [Suspect]
     Active Substance: OXCARBAZEPINE
     Indication: Epilepsy
     Dosage: 2 ML, Q12H (8.4MG/KG.D)
     Route: 048
     Dates: start: 20220801
  2. OXCARBAZEPINE [Suspect]
     Active Substance: OXCARBAZEPINE
     Dosage: 4 ML, Q12H (22.86MG/KG.D)
     Route: 048
     Dates: start: 20220811, end: 20220906

REACTIONS (4)
  - Pruritus [Unknown]
  - Mouth swelling [Unknown]
  - Lip swelling [Unknown]
  - Rash [Recovering/Resolving]

NARRATIVE: CASE EVENT DATE: 20220903
